FAERS Safety Report 5515798-9 (Version None)
Quarter: 2007Q4

REPORT INFORMATION
  Report Type: 
  Country: None (occurrence: None)
  Receive Date: 20071114
  Receipt Date: 20071031
  Transmission Date: 20080405
  Serious: Yes (Hospitalization)
  Sender: FDA-Public Use
  Company Number: HU-ELI_LILLY_AND_COMPANY-HU200711000324

PATIENT
  Age: 62 Year
  Sex: Male

DRUGS (22)
  1. OLANZAPINE [Suspect]
     Indication: SCHIZOPHRENIA
     Dosage: 5 MG, DAILY (1/D)
     Route: 065
  2. OLANZAPINE [Suspect]
     Dosage: 30 MG, DAILY (1/D)
     Route: 065
  3. CLOZAPINE [Concomitant]
     Indication: SCHIZOPHRENIA
     Dosage: 150 MG, DAILY (1/D)
     Route: 065
  4. CLOZAPINE [Concomitant]
     Dosage: 100 MG, DAILY (1/D)
     Route: 065
  5. CLONAZEPAM [Concomitant]
     Indication: SEDATION
     Dosage: 6 MG, DAILY (1/D)
     Route: 065
  6. CLONAZEPAM [Concomitant]
     Dosage: 1 MG, DAILY (1/D)
     Route: 065
  7. CLONAZEPAM [Concomitant]
     Dosage: UNK, UNKNOWN
     Route: 051
  8. CLONAZEPAM [Concomitant]
     Dosage: UNK, UNKNOWN
     Route: 065
  9. HALOPERIDOL [Concomitant]
     Indication: SEDATION
     Dosage: 9 MG, DAILY (1/D)
     Route: 065
  10. HALOPERIDOL [Concomitant]
     Dosage: UNK, UNKNOWN
     Route: 051
  11. HALOPERIDOL [Concomitant]
     Dosage: UNK, UNKNOWN
     Route: 065
  12. LEVOMEPROMAZINE [Concomitant]
     Dosage: 150 MG, DAILY (1/D)
     Route: 065
  13. AMOBARBITAL SODIUM [Concomitant]
     Dosage: 400 MG, DAILY (1/D)
     Route: 065
  14. MEPROBAMATE [Concomitant]
     Dosage: 1200 MG, DAILY (1/D)
     Route: 065
  15. RISPERIDONE [Concomitant]
     Indication: SCHIZOPHRENIA
     Dosage: 37.5 MG, LONG-ACTING INJECTABLE
     Route: 065
  16. RISPERIDONE [Concomitant]
     Dosage: 8 MG, DAILY (1/D)
     Route: 065
  17. PROMETHAZINE [Concomitant]
     Indication: SEDATION
     Dosage: UNK, UNKNOWN
     Route: 051
  18. PROMETHAZINE [Concomitant]
     Dosage: UNK, UNKNOWN
     Route: 065
  19. FUROSEMIDE [Concomitant]
     Dosage: 40 MG, UNKNOWN
     Route: 065
  20. POTASSIUM CHLORIDE [Concomitant]
     Dosage: 1000 MG, QOD
     Route: 065
  21. THEOPHYLLINE [Concomitant]
     Dosage: 300 MG, DAILY (1/D)
     Route: 065
  22. VINPOCETINE [Concomitant]
     Dosage: 30 MG, DAILY (1/D)
     Route: 065

REACTIONS (6)
  - AGGRESSION [None]
  - AGITATION [None]
  - CARDIAC FAILURE [None]
  - ERYSIPELAS [None]
  - ILEUS PARALYTIC [None]
  - RESPIRATORY FAILURE [None]
